FAERS Safety Report 5261934-1 (Version None)
Quarter: 2007Q1

REPORT INFORMATION
  Report Type: 
  Country: None (occurrence: None)
  Receive Date: 20070308
  Receipt Date: 20070227
  Transmission Date: 20070707
  Serious: Yes (Hospitalization)
  Sender: FDA-Public Use
  Company Number: E3810-00340-CLI-US

PATIENT
  Age: 52 Year
  Sex: Male
  Weight: 73 kg

DRUGS (6)
  1. RABEPRAZOLE SODIUM [Suspect]
     Indication: DYSPEPSIA
     Dosage: 1 TABLET, 1 IN 1 D, ORAL
     Route: 048
     Dates: start: 20060801, end: 20060930
  2. MIRTAZAPINE [Concomitant]
  3. DARVOCET [Concomitant]
  4. COMBIVENT [Concomitant]
  5. NEXIUM [Concomitant]
  6. SEROQUEL [Concomitant]

REACTIONS (1)
  - MENTAL DISORDER [None]
